FAERS Safety Report 5825932-9 (Version None)
Quarter: 2008Q3

REPORT INFORMATION
  Report Type: 
  Country: None (occurrence: None)
  Receive Date: 20080729
  Receipt Date: 20080722
  Transmission Date: 20090109
  Serious: Yes (Other)
  Sender: FDA-Public Use
  Company Number: PHEH2008US06577

PATIENT
  Sex: Male

DRUGS (3)
  1. EXFORGE [Suspect]
     Indication: HYPERTENSION
     Dosage: 5MGAMLO/160MGDIO, QD
     Dates: start: 20080630, end: 20080718
  2. EXFORGE [Suspect]
     Dosage: 10MGAMLO/160MGDIO, QD
     Dates: start: 20080718, end: 20080721
  3. TESTOSTERONE [Concomitant]
     Dosage: 1/2 CC , QID
     Route: 058

REACTIONS (6)
  - ANURIA [None]
  - BLADDER CATHETER TEMPORARY [None]
  - DIABETES MELLITUS [None]
  - PYREXIA [None]
  - URINARY RETENTION [None]
  - URINARY TRACT INFECTION [None]
